FAERS Safety Report 10173870 (Version 1)
Quarter: 2014Q2

REPORT INFORMATION
  Report Type: Spontaneous
  Country: US (occurrence: None)
  Receive Date: 20140513
  Receipt Date: 20140513
  Transmission Date: 20141212
  Serious: Yes (Life-Threatening, Hospitalization)
  Sender: FDA-Public Use
  Company Number: 2014AP002952

PATIENT
  Age: 52 Year
  Sex: Male
  Weight: 89 kg

DRUGS (12)
  1. PAROXETINE HYDROCHLORIDE [Suspect]
     Indication: DEPRESSION
  2. FONDAPARINUX SODIUM [Suspect]
     Indication: PULMONARY EMBOLISM
     Route: 058
     Dates: start: 20140130, end: 20140131
  3. SUNITINIB (SUNITINIB) [Suspect]
     Route: 048
     Dates: end: 20140130
  4. COUMADIN [Suspect]
     Route: 048
     Dates: end: 20140130
  5. SODIUM RABEPRAZOLE [Suspect]
     Indication: PRODUCT USED FOR UNKNOWN INDICATION
  6. PROBIOTIC [Suspect]
  7. DOCUSATE SODIUM [Concomitant]
  8. LISINOPRIL [Concomitant]
  9. MS CONTIN (MORPHINE SULFATE) [Concomitant]
  10. MULTIVITAMIN /00097801/ (ASCORBIC ACID, CALCIUM PANTOTHENATE, ERGOCALCIFEROL, NICOTINAMIDE, PYRIDOXINE HYDROCHLORIDE, RETINOL, RIBOFLAVIN, THIAMINE HYDROCHLORIDE) [Concomitant]
  11. NICODERM (NICOTINE) [Concomitant]
  12. NORCO (HYDROCODONE BITARTRATE, PARACETAMOL) [Concomitant]

REACTIONS (29)
  - Lung hyperinflation [None]
  - Lung infiltration [None]
  - Haemoptysis [None]
  - Haematemesis [None]
  - International normalised ratio increased [None]
  - Haemoglobin decreased [None]
  - Anaemia [None]
  - Abdominal tenderness [None]
  - Abdominal pain [None]
  - Gastrointestinal sounds abnormal [None]
  - Coagulopathy [None]
  - Calculus ureteric [None]
  - Lymphadenopathy [None]
  - Depression [None]
  - Oesophagogastroduodenoscopy [None]
  - Blood product transfusion [None]
  - Packed red blood cell transfusion [None]
  - Fatigue [None]
  - Gastrointestinal tube insertion [None]
  - Hospice care [None]
  - Vomiting [None]
  - Abdominal mass [None]
  - Renal mass [None]
  - Drug ineffective [None]
  - Tachycardia [None]
  - Anxiety [None]
  - Asthenia [None]
  - Dizziness [None]
  - Upper gastrointestinal haemorrhage [None]
